FAERS Safety Report 7246720-5 (Version None)
Quarter: 2011Q1

REPORT INFORMATION
  Report Type: 
  Country: None (occurrence: None)
  Receive Date: 20110127
  Receipt Date: 20110118
  Transmission Date: 20110831
  Serious: Yes (Hospitalization, Other)
  Sender: FDA-Public Use
  Company Number: FR-AMGEN-FRASP2010007198

PATIENT
  Age: 44 Year
  Sex: Female

DRUGS (5)
  1. ENBREL [Suspect]
     Dosage: 50 MG, WEEKLY
     Route: 058
     Dates: start: 20100219, end: 20100613
  2. DAFLON [Concomitant]
     Indication: VENOUS INSUFFICIENCY
     Dosage: 2 TABLETS PER DAY
     Route: 048
  3. ENBREL [Suspect]
     Dosage: 50 MG, WEEKLY
     Dates: start: 20100101, end: 20100805
  4. VOLTAREN [Concomitant]
     Indication: POLYARTHRITIS
     Dosage: 75 MG, 1X/DAY
     Route: 048
     Dates: start: 20100201
  5. ENBREL [Suspect]
     Indication: RHEUMATOID ARTHRITIS
     Dosage: UNK

REACTIONS (6)
  - BRONCHIOLITIS [None]
  - ATELECTASIS [None]
  - PULMONARY GRANULOMA [None]
  - PLEURAL EFFUSION [None]
  - LYMPHADENOPATHY [None]
  - LYMPHADENOPATHY MEDIASTINAL [None]
